FAERS Safety Report 8495146-5 (Version None)
Quarter: 2012Q3

REPORT INFORMATION
  Report Type: 
  Country: None (occurrence: None)
  Receive Date: 20120709
  Receipt Date: 20120702
  Transmission Date: 20120928
  Serious: Yes (Death, Hospitalization, Other)
  Sender: FDA-Public Use
  Company Number: DE-GENZYME-CLOF-1002206

PATIENT
  Sex: Male
  Weight: 77 kg

DRUGS (3)
  1. IDARUBICIN HCL [Concomitant]
     Indication: ACUTE MYELOID LEUKAEMIA
     Dosage: 12 MG/M2, UNK
     Route: 065
     Dates: start: 20120618, end: 20120620
  2. CLOFARABINE [Suspect]
     Indication: ACUTE MYELOID LEUKAEMIA
     Dosage: 25 MG/M2, BID
     Route: 065
     Dates: start: 20120618, end: 20120622
  3. CYTARABINE [Concomitant]
     Indication: ACUTE MYELOID LEUKAEMIA
     Dosage: 1448 MG/M2, UNK
     Route: 065
     Dates: start: 20120618, end: 20120622

REACTIONS (5)
  - HYPOTONIA [None]
  - PNEUMONIA [None]
  - PULMONARY HAEMORRHAGE [None]
  - STENOTROPHOMONAS INFECTION [None]
  - BLOOD PRESSURE DECREASED [None]
